FAERS Safety Report 16230555 (Version 2)
Quarter: 2019Q4

REPORT INFORMATION
  Report Type: Spontaneous
  Country: US (occurrence: US)
  Receive Date: 20190423
  Receipt Date: 20191028
  Transmission Date: 20200122
  Serious: Yes (Death, Other)
  Sender: FDA-Public Use
  Company Number: US-ASTRAZENECA-2018SF65224

PATIENT
  Sex: Male
  Weight: 103 kg

DRUGS (21)
  1. METOPROLOL. [Concomitant]
     Active Substance: METOPROLOL
  2. METOPROLOL TARTRATE. [Concomitant]
     Active Substance: METOPROLOL TARTRATE
  3. RENVELA [Concomitant]
     Active Substance: SEVELAMER CARBONATE
  4. TORSEMIDE. [Concomitant]
     Active Substance: TORSEMIDE
  5. MINOXIDIL. [Concomitant]
     Active Substance: MINOXIDIL
  6. PENICILLIN [Concomitant]
     Active Substance: PENICILLIN
  7. FLUTICASONE. [Concomitant]
     Active Substance: FLUTICASONE
  8. DOXYCYCLIN [Concomitant]
     Active Substance: DOXYCYCLINE
  9. GABAPENTIN. [Concomitant]
     Active Substance: GABAPENTIN
  10. AZITHROMYCIN ANHYDROUS. [Concomitant]
     Active Substance: AZITHROMYCIN ANHYDROUS
  11. DEMADEX [Concomitant]
     Active Substance: TORSEMIDE
  12. NEXIUM [Suspect]
     Active Substance: ESOMEPRAZOLE MAGNESIUM
     Route: 048
  13. NEXIUM [Suspect]
     Active Substance: ESOMEPRAZOLE MAGNESIUM
     Route: 048
     Dates: start: 20131024
  14. HYDROCODONE BITARTRATE AND ACETAMINOPHEN [Concomitant]
     Active Substance: ACETAMINOPHEN\HYDROCODONE BITARTRATE
  15. DIAZEPAM. [Concomitant]
     Active Substance: DIAZEPAM
  16. TORSEMIDE. [Concomitant]
     Active Substance: TORSEMIDE
  17. CLONAZEPAM. [Concomitant]
     Active Substance: CLONAZEPAM
  18. OXYCODONE [Concomitant]
     Active Substance: OXYCODONE
  19. RIFAMPIN. [Concomitant]
     Active Substance: RIFAMPIN
  20. DIAZEPAM. [Concomitant]
     Active Substance: DIAZEPAM
  21. CLINDAMYCIN. [Concomitant]
     Active Substance: CLINDAMYCIN

REACTIONS (5)
  - Renal failure [Unknown]
  - Nephropathy [Unknown]
  - End stage renal disease [Unknown]
  - Chronic kidney disease [Unknown]
  - Rebound acid hypersecretion [Unknown]
